FAERS Safety Report 25534044 (Version 1)
Quarter: 2025Q3

REPORT INFORMATION
  Report Type: Spontaneous
  Country: US (occurrence: US)
  Receive Date: 20250709
  Receipt Date: 20250709
  Transmission Date: 20251020
  Serious: No
  Sender: LUPIN
  Company Number: US-LUPIN PHARMACEUTICALS INC.-2025-05924

PATIENT
  Age: 33 Year

DRUGS (3)
  1. TOLVAPTAN [Suspect]
     Active Substance: TOLVAPTAN
     Indication: Congenital cystic kidney disease
     Dosage: 1 DOSAGE FORM, QD (TAKE 45 MG EVERY MORNING )
  2. TOLVAPTAN [Suspect]
     Active Substance: TOLVAPTAN
     Indication: Congenital cystic kidney disease
     Dosage: 1 DOSAGE FORM, QD (TAKE 15 MG EVERY EVENING AS DIRECTED)
  3. JYNARQUE [Concomitant]
     Active Substance: TOLVAPTAN
     Indication: Product used for unknown indication
     Route: 065

REACTIONS (4)
  - Thirst [Unknown]
  - Dry mouth [Unknown]
  - Pollakiuria [Unknown]
  - Weight decreased [Unknown]
